FAERS Safety Report 7068027-1 (Version None)
Quarter: 2010Q4

REPORT INFORMATION
  Report Type: 
  Country: None (occurrence: None)
  Receive Date: 20101028
  Receipt Date: 20101013
  Transmission Date: 20110411
  Serious: Yes (Life-Threatening, Other)
  Sender: FDA-Public Use
  Company Number: US-AMGEN-QUU435118

PATIENT

DRUGS (4)
  1. NPLATE [Suspect]
     Indication: IDIOPATHIC THROMBOCYTOPENIC PURPURA
     Dosage: 8 A?G/KG, QWK
     Route: 058
     Dates: start: 20080930, end: 20091228
  2. IMMU-G [Concomitant]
     Dosage: UNK UNK, UNK
     Route: 042
     Dates: start: 20071003
  3. EXCEDRIN                           /00110301/ [Concomitant]
  4. PREDNISONE [Concomitant]

REACTIONS (16)
  - ABDOMINAL DISTENSION [None]
  - ABDOMINAL PAIN [None]
  - ACCESSORY SPLEEN [None]
  - ATELECTASIS [None]
  - BIOPSY BONE MARROW ABNORMAL [None]
  - DIVERTICULUM [None]
  - HEPATIC STEATOSIS [None]
  - OEDEMA PERIPHERAL [None]
  - PANCREATIC CYST [None]
  - PULMONARY FIBROSIS [None]
  - RENAL CYST [None]
  - SPLENIC VEIN THROMBOSIS [None]
  - THERAPEUTIC RESPONSE DECREASED [None]
  - THROMBOCYTOPENIA [None]
  - UMBILICAL HERNIA [None]
  - VASCULAR CALCIFICATION [None]
